FAERS Safety Report 8408359-5 (Version None)
Quarter: 2012Q2

REPORT INFORMATION
  Report Type: 
  Country: None (occurrence: None)
  Receive Date: 20120604
  Receipt Date: 20120528
  Transmission Date: 20120825
  Serious: Yes (Life-Threatening)
  Sender: FDA-Public Use
  Company Number: JP-CUBIST-2012S1000409

PATIENT
  Age: 81 Year
  Sex: Male

DRUGS (7)
  1. CARVEDILOL [Concomitant]
     Indication: HYPERTENSION
  2. CUBICIN [Suspect]
     Indication: SEPSIS
     Route: 042
     Dates: start: 20120418, end: 20120418
  3. AMLODIPINE BESYLATE [Concomitant]
     Indication: ANGINA PECTORIS
  4. CARVEDILOL [Concomitant]
     Indication: ANGINA PECTORIS
  5. OLMESARTAN MEDOXOMIL [Concomitant]
     Indication: ANGINA PECTORIS
  6. OLMESARTAN MEDOXOMIL [Concomitant]
     Indication: HYPERTENSION
  7. AMLODIPINE BESYLATE [Concomitant]
     Indication: HYPERTENSION

REACTIONS (1)
  - VENTRICULAR ARRHYTHMIA [None]
